FAERS Safety Report 9723044 (Version 1)
Quarter: 2013Q4

REPORT INFORMATION
  Report Type: Spontaneous
  Country: US (occurrence: None)
  Receive Date: 20131127
  Receipt Date: 20131127
  Transmission Date: 20140711
  Serious: Yes (Hospitalization)
  Sender: FDA-Public Use
  Company Number: None

PATIENT
  Age: 57 Year
  Sex: Female
  Weight: 129.28 kg

DRUGS (1)
  1. LISINOPRIL HCTZ [Suspect]
     Indication: HYPERTENSION
     Dosage: 1 PILL ONCE DAILY TAKEN BY MOUTH
     Dates: start: 20130713, end: 20131108

REACTIONS (2)
  - Dry mouth [None]
  - Gallbladder disorder [None]
